FAERS Safety Report 9418046 (Version 1)
Quarter: 2013Q3

REPORT INFORMATION
  Report Type: Spontaneous
  Country: US (occurrence: US)
  Receive Date: 20130724
  Receipt Date: 20130724
  Transmission Date: 20140515
  Serious: No
  Sender: FDA-Public Use
  Company Number: US-BAUSCH-2012BL003814

PATIENT
  Age: 78 Year
  Sex: Female

DRUGS (1)
  1. OPCON-A [Suspect]
     Indication: MULTIPLE ALLERGIES
     Dosage: 1 DROP; ONCE DAILY; OPHTHALMIC
     Route: 047
     Dates: start: 201205, end: 20120607

REACTIONS (2)
  - Eye irritation [Recovered/Resolved]
  - Ocular hyperaemia [Recovered/Resolved]
